FAERS Safety Report 4991377-7 (Version None)
Quarter: 2006Q2

REPORT INFORMATION
  Report Type: 
  Country: None (occurrence: None)
  Receive Date: 20060501
  Receipt Date: 20060421
  Transmission Date: 20061013
  Serious: Yes (Life-Threatening, Hospitalization)
  Sender: FDA-Public Use
  Company Number: 200610320BWH

PATIENT
  Age: 60 Year
  Sex: Male
  Weight: 82.5547 kg

DRUGS (11)
  1. SORAFENIB [Suspect]
     Indication: METASTATIC RENAL CELL CARCINOMA
     Dosage: 400 MG, BID, ORAL
     Route: 048
     Dates: start: 20051219, end: 20060111
  2. THALIDOMIDE [Concomitant]
  3. GEMZAR [Concomitant]
  4. PROLEUKIN [Concomitant]
  5. NEURONTIN [Concomitant]
  6. LASIX [Concomitant]
  7. CORTEF [Concomitant]
  8. MORPHINE SULFATE [Concomitant]
  9. DILAUDID [Concomitant]
  10. MS CONTIN [Concomitant]
  11. PROCRIT [Concomitant]

REACTIONS (11)
  - ANAEMIA [None]
  - BRAIN OEDEMA [None]
  - CHEST PAIN [None]
  - CONVULSION [None]
  - HAEMATURIA [None]
  - HYPERTENSIVE CRISIS [None]
  - HYPOKALAEMIA [None]
  - LOSS OF CONSCIOUSNESS [None]
  - PROTEINURIA [None]
  - REVERSIBLE POSTERIOR LEUKOENCEPHALOPATHY SYNDROME [None]
  - VENTRICULAR EXTRASYSTOLES [None]
